FAERS Safety Report 24271516 (Version 1)
Quarter: 2024Q3

REPORT INFORMATION
  Report Type: Report from Study
  Country: CA (occurrence: CA)
  Receive Date: 20240901
  Receipt Date: 20240901
  Transmission Date: 20241016
  Serious: Yes (Other)
  Sender: ABBVIE
  Company Number: CA-ABBVIE-5901861

PATIENT
  Age: 44 Year
  Sex: Female

DRUGS (1)
  1. SKYRIZI [Suspect]
     Active Substance: RISANKIZUMAB-RZAA
     Indication: Crohn^s disease
     Dosage: FREQUENCY TEXT: WEEK 0, 4 AND 8
     Route: 042
     Dates: start: 20240731

REACTIONS (7)
  - Loss of consciousness [Not Recovered/Not Resolved]
  - Throat irritation [Recovering/Resolving]
  - Haematochezia [Not Recovered/Not Resolved]
  - Feeling abnormal [Unknown]
  - Tooth fracture [Unknown]
  - Malaise [Unknown]
  - Blindness [Unknown]

NARRATIVE: CASE EVENT DATE: 20240101
